FAERS Safety Report 9341698 (Version 1)
Quarter: 2013Q2

REPORT INFORMATION
  Report Type: Spontaneous
  Country: MY (occurrence: MY)
  Receive Date: 20130611
  Receipt Date: 20130611
  Transmission Date: 20140414
  Serious: Yes (Death, Other)
  Sender: FDA-Public Use
  Company Number: MY-SUN PHARMACEUTICAL INDUSTRIES LTD-2013SUN00714

PATIENT
  Age: 81 Year
  Sex: Male

DRUGS (2)
  1. CLOPIDOGREL [Suspect]
     Indication: ANTIPLATELET THERAPY
     Dosage: 75 MG, UNK
     Route: 065
  2. ASPIRIN [Suspect]
     Dosage: 300 MG, UNK

REACTIONS (5)
  - Ageusia [Unknown]
  - Myocardial infarction [None]
  - Quality of life decreased [None]
  - Weight decreased [None]
  - Decreased appetite [None]
